FAERS Safety Report 7512504-3 (Version None)
Quarter: 2011Q2

REPORT INFORMATION
  Report Type: 
  Country: None (occurrence: None)
  Receive Date: 20110531
  Receipt Date: 20110526
  Transmission Date: 20111010
  Serious: Yes (Death)
  Sender: FDA-Public Use
  Company Number: BR-ROCHE-778216

PATIENT
  Sex: Female

DRUGS (2)
  1. DOCETAXEL [Concomitant]
     Dosage: ONCE A MONTH IN SALINE SOLUTION
     Route: 042
     Dates: end: 20110201
  2. AVASTIN [Suspect]
     Dosage: FORM: INFUSION
     Route: 042
     Dates: start: 20100101, end: 20110201

REACTIONS (2)
  - DISEASE PROGRESSION [None]
  - HYPERTENSION [None]
